FAERS Safety Report 4970411-4 (Version None)
Quarter: 2006Q2

REPORT INFORMATION
  Report Type: 
  Country: None (occurrence: None)
  Receive Date: 20060412
  Receipt Date: 20060330
  Transmission Date: 20061013
  Serious: Yes (Other)
  Sender: FDA-Public Use
  Company Number: 2006JP000811

PATIENT
  Age: 28 Year
  Sex: Female

DRUGS (4)
  1. CEFAZOLIN [Suspect]
     Indication: DRUG USE FOR UNKNOWN INDICATION
     Dosage: 2G PER DAY
     Route: 042
     Dates: start: 20060316, end: 20060318
  2. VICCILLIN [Suspect]
     Indication: DRUG USE FOR UNKNOWN INDICATION
     Dosage: 4G PER DAY
     Route: 042
     Dates: start: 20060312, end: 20060316
  3. GLOBULIN [Concomitant]
  4. STEROID [Concomitant]

REACTIONS (2)
  - DRUG EXPOSURE DURING PREGNANCY [None]
  - PLATELET COUNT DECREASED [None]
